FAERS Safety Report 12059001 (Version 1)
Quarter: 2016Q1

REPORT INFORMATION
  Report Type: Spontaneous
  Country: US (occurrence: None)
  Receive Date: 20160209
  Receipt Date: 20160209
  Transmission Date: 20160526
  Serious: No
  Sender: FDA-Public Use
  Company Number: None

PATIENT
  Age: 57 Year
  Sex: Female
  Weight: 90.72 kg

DRUGS (13)
  1. LYRCIA [Concomitant]
  2. MULTIVITAMIN [Concomitant]
     Active Substance: VITAMINS
  3. LIDOCAINE PATCH 5% [Suspect]
     Active Substance: LIDOCAINE
     Indication: SPINAL OPERATION
     Route: 061
     Dates: start: 20100505
  4. OPANA [Concomitant]
     Active Substance: OXYMORPHONE HYDROCHLORIDE
  5. TANZIDINE [Concomitant]
  6. CELEBREX [Concomitant]
     Active Substance: CELECOXIB
  7. ESTRADOL [Concomitant]
  8. LIDOCAINE PATCH 5% [Suspect]
     Active Substance: LIDOCAINE
     Indication: ARTHRITIS
     Route: 061
     Dates: start: 20100505
  9. LIDOCAINE PATCH 5% [Suspect]
     Active Substance: LIDOCAINE
     Indication: BURSITIS
     Route: 061
     Dates: start: 20100505
  10. CYMBALTA [Concomitant]
     Active Substance: DULOXETINE HYDROCHLORIDE
  11. OPANA ER [Concomitant]
     Active Substance: OXYMORPHONE HYDROCHLORIDE
  12. LEVOTHYROXINE. [Concomitant]
     Active Substance: LEVOTHYROXINE
  13. METFORMIN [Concomitant]
     Active Substance: METFORMIN HYDROCHLORIDE

REACTIONS (2)
  - Pain [None]
  - Product adhesion issue [None]

NARRATIVE: CASE EVENT DATE: 20160125
